FAERS Safety Report 6440623-1 (Version None)
Quarter: 2009Q4

REPORT INFORMATION
  Report Type: 
  Country: None (occurrence: None)
  Receive Date: 20091114
  Receipt Date: 20091110
  Transmission Date: 20100525
  Serious: Yes (Death, Hospitalization)
  Sender: FDA-Public Use
  Company Number: US-CELGENEUS-163-50794-09092166

PATIENT
  Sex: Male
  Weight: 88.4 kg

DRUGS (17)
  1. VIDAZA [Suspect]
     Route: 051
     Dates: start: 20090824, end: 20090901
  2. VIDAZA [Suspect]
     Route: 051
     Dates: start: 20090622, end: 20090630
  3. ARANESP [Concomitant]
     Indication: DRUG USE FOR UNKNOWN INDICATION
     Route: 065
  4. NEUPOGEN [Concomitant]
     Indication: DRUG USE FOR UNKNOWN INDICATION
     Route: 065
  5. CENTRUM [Concomitant]
     Indication: DRUG USE FOR UNKNOWN INDICATION
     Route: 048
  6. MIRAPEX [Concomitant]
     Indication: DRUG USE FOR UNKNOWN INDICATION
     Route: 048
     Dates: start: 20090921
  7. HYDROCODONE/TYLENOL [Concomitant]
     Indication: DRUG USE FOR UNKNOWN INDICATION
     Dosage: 5/500MG
     Route: 048
     Dates: start: 20090806
  8. TYLENOL (CAPLET) [Concomitant]
     Indication: DRUG USE FOR UNKNOWN INDICATION
     Dosage: 1-2
     Route: 048
  9. FUROSEMIDE [Concomitant]
     Indication: HYPERTENSION
     Route: 048
     Dates: start: 20090804, end: 20090929
  10. FUROSEMIDE [Concomitant]
     Indication: DIURETIC THERAPY
  11. POTASSIUM CHLORIDE [Concomitant]
     Indication: HYPERTENSION
     Route: 048
     Dates: start: 20090728, end: 20090929
  12. POTASSIUM CHLORIDE [Concomitant]
  13. LISINOPRIL [Concomitant]
     Indication: HYPERTENSION
     Route: 048
     Dates: start: 20090806, end: 20090929
  14. PROPRANOLOL [Concomitant]
     Indication: HYPERTENSION
     Route: 048
     Dates: start: 20090806, end: 20090929
  15. METFORMIN [Concomitant]
     Route: 048
     Dates: start: 20090128, end: 20090929
  16. DOXAZOSIN MESYLATE [Concomitant]
     Indication: HYPERTENSION
     Route: 048
     Dates: start: 20090921, end: 20090929
  17. TEMAZEPAM [Concomitant]
     Indication: DRUG USE FOR UNKNOWN INDICATION
     Route: 048
     Dates: start: 20090805

REACTIONS (5)
  - APLASTIC ANAEMIA [None]
  - FAILURE TO THRIVE [None]
  - HEPATIC CIRRHOSIS [None]
  - HYPERTENSION [None]
  - URINARY TRACT INFECTION [None]
